FAERS Safety Report 4357624-X (Version None)
Quarter: 2004Q2

REPORT INFORMATION
  Report Type: 
  Country: None (occurrence: None)
  Receive Date: 20040510
  Receipt Date: 20040421
  Transmission Date: 20050107
  Serious: Yes (Other)
  Sender: FDA-Public Use
  Company Number: 200403091

PATIENT
  Age: 75 Year
  Sex: Male

DRUGS (2)
  1. ZYMAR [Suspect]
     Indication: POSTOPERATIVE CARE
  2. ZYMAR [Suspect]
     Indication: PREOPERATIVE CARE

REACTIONS (2)
  - ENDOPHTHALMITIS [None]
  - INFECTION [None]
